FAERS Safety Report 7628645-6 (Version None)
Quarter: 2011Q3

REPORT INFORMATION
  Report Type: 
  Country: None (occurrence: None)
  Receive Date: 20110714
  Receipt Date: 20110629
  Transmission Date: 20111222
  Serious: Yes (Life-Threatening, Hospitalization)
  Sender: FDA-Public Use
  Company Number: TCI2011A03783

PATIENT
  Age: 65 Year
  Sex: Female

DRUGS (3)
  1. ACTOS [Suspect]
     Indication: TYPE 2 DIABETES MELLITUS
     Dosage: 15MG (15 MG, 1 D) ORAL
     Route: 048
     Dates: start: 20080630, end: 20090110
  2. HMG COA REDUCTASE INHIBITORS [Concomitant]
  3. ORAL ANTIDIABETICS [Concomitant]

REACTIONS (1)
  - PANCREATIC CARCINOMA [None]
